FAERS Safety Report 9435841 (Version 1)
Quarter: 2013Q3

REPORT INFORMATION
  Report Type: Spontaneous
  Country: US (occurrence: None)
  Receive Date: 20130801
  Receipt Date: 20130801
  Transmission Date: 20140515
  Serious: Yes (Other)
  Sender: FDA-Public Use
  Company Number: None

PATIENT
  Age: 57 Year
  Sex: Female
  Weight: 84.82 kg

DRUGS (15)
  1. GABAPENTIN [Suspect]
     Indication: MIGRAINE PROPHYLAXIS
     Dosage: 1 CAPSULE FOR 5 NIGHTS, THEN 2 PER DAY
     Route: 048
     Dates: start: 20130717
  2. AMPHETAMINE SALTS [Concomitant]
  3. ALPRAZOLAM [Concomitant]
  4. LORAZEPAM [Concomitant]
  5. MAXALT-MLT [Concomitant]
  6. GABAPENTIN [Concomitant]
  7. ALPRAZOLAM [Concomitant]
  8. D3 [Concomitant]
  9. VITAMIN B-12 [Concomitant]
  10. POTASSIUM [Concomitant]
  11. MAGNESIUM [Concomitant]
  12. CALCIUM WITH VITAMIN D [Concomitant]
  13. PAPAYA ENZYME [Concomitant]
  14. ALEVE [Concomitant]
  15. ADVIL LIQUI-GELS [Concomitant]

REACTIONS (20)
  - Somnolence [None]
  - Muscle spasms [None]
  - Myalgia [None]
  - Discomfort [None]
  - Pain [None]
  - Migraine [None]
  - Abnormal dreams [None]
  - Yawning [None]
  - Neck pain [None]
  - Memory impairment [None]
  - Impaired work ability [None]
  - Disturbance in attention [None]
  - Pain in extremity [None]
  - Muscle tightness [None]
  - Flatulence [None]
  - Nausea [None]
  - Fatigue [None]
  - Paraesthesia [None]
  - Burning sensation [None]
  - Pruritus [None]
